FAERS Safety Report 13301719 (Version 1)
Quarter: 2017Q1

REPORT INFORMATION
  Report Type: Spontaneous
  Country: US (occurrence: US)
  Receive Date: 20170306
  Receipt Date: 20170306
  Transmission Date: 20170428
  Serious: Yes (Hospitalization)
  Sender: FDA-Public Use
  Company Number: None

PATIENT
  Age: 55 Year

DRUGS (4)
  1. PRAVASTATIN. [Concomitant]
     Active Substance: PRAVASTATIN
  2. COLISTIMETHATE 150MG SDV X-GEN [Suspect]
     Active Substance: COLISTIMETHATE SODIUM
     Indication: RESPIRATORY DISORDER
     Route: 055
     Dates: start: 201611
  3. CYCLOSPORIN [Concomitant]
     Active Substance: CYCLOSPORINE
  4. SMZ-TMP [Concomitant]
     Active Substance: SULFAMETHOXAZOLE\TRIMETHOPRIM

REACTIONS (2)
  - Lung transplant [None]
  - Drug dose omission [None]

NARRATIVE: CASE EVENT DATE: 20170221
